FAERS Safety Report 17874724 (Version 2)
Quarter: 2020Q4

REPORT INFORMATION
  Report Type: Report from Study
  Country: MX (occurrence: MX)
  Receive Date: 20200609
  Receipt Date: 20201026
  Transmission Date: 20210113
  Serious: Yes (Other)
  Sender: FDA-Public Use
  Company Number: NVSC2020MX159857

PATIENT
  Age: 44 Year
  Sex: Male
  Weight: 93 kg

DRUGS (1)
  1. TASIGNA [Suspect]
     Active Substance: NILOTINIB
     Indication: CHRONIC MYELOID LEUKAEMIA
     Dosage: 400 MG, Q12H
     Route: 048
     Dates: start: 202003, end: 202007

REACTIONS (6)
  - Somnolence [Recovering/Resolving]
  - Dysstasia [Unknown]
  - Somnolence [Recovered/Resolved]
  - Food refusal [Unknown]
  - Fatigue [Recovered/Resolved]
  - Asthenia [Recovering/Resolving]

NARRATIVE: CASE EVENT DATE: 20200521
